FAERS Safety Report 22073820 (Version 1)
Quarter: 2023Q1

REPORT INFORMATION
  Report Type: Spontaneous
  Country: IT (occurrence: IT)
  Receive Date: 20230308
  Receipt Date: 20230308
  Transmission Date: 20230417
  Serious: Yes (Hospitalization)
  Sender: FDA-Public Use
  Company Number: None

PATIENT
  Age: 69 Year
  Sex: Male

DRUGS (1)
  1. AZITHROMYCIN [Suspect]
     Active Substance: AZITHROMYCIN
     Indication: Infection
     Dosage: 1 DF, 1X/DAY (1 CAPSULE FOR 3 DAYS)
     Route: 048
     Dates: start: 20221223, end: 20221225

REACTIONS (4)
  - Flushing [Recovered/Resolved]
  - Face oedema [Recovered/Resolved]
  - Macular oedema [Recovered/Resolved]
  - Rash pruritic [Recovered/Resolved]

NARRATIVE: CASE EVENT DATE: 20221225
